FAERS Safety Report 25368891 (Version 1)
Quarter: 2025Q2

REPORT INFORMATION
  Report Type: Spontaneous
  Country: TW (occurrence: TW)
  Receive Date: 20250528
  Receipt Date: 20250528
  Transmission Date: 20250716
  Serious: Yes (Other)
  Sender: SANDOZ
  Company Number: None

PATIENT
  Age: 82 Year
  Sex: Female
  Weight: 53.2 kg

DRUGS (19)
  1. AMOXICILLIN\CLAVULANATE POTASSIUM [Suspect]
     Active Substance: AMOXICILLIN\CLAVULANATE POTASSIUM
     Indication: Wound infection
     Dosage: 0.5 MG, BID, (STRENGTH: 125 MG/875 MG)
     Route: 048
  2. AMOXICILLIN\CLAVULANATE POTASSIUM [Suspect]
     Active Substance: AMOXICILLIN\CLAVULANATE POTASSIUM
     Indication: Wound infection
     Dosage: 1200 MG, TID, DRY POWDER INJECTION, (STRENGTH: 0.5 GM/ 0.1 GM)
     Route: 042
  3. AMOXICILLIN\CLAVULANATE POTASSIUM [Suspect]
     Active Substance: AMOXICILLIN\CLAVULANATE POTASSIUM
     Dosage: 1200 MG, TID, DRY POWDER INJECTION, (STRENGTH: 1 GM/ 0.2 GM)
     Route: 042
  4. LINAGLIPTIN [Suspect]
     Active Substance: LINAGLIPTIN
     Indication: Blood glucose decreased
     Dosage: 1 DF, QD
     Route: 050
  5. ACTOS [Concomitant]
     Active Substance: PIOGLITAZONE HYDROCHLORIDE
     Indication: Blood glucose decreased
     Dosage: 1 DF, QD
     Route: 050
     Dates: start: 20240104, end: 20240201
  6. All right calcium [Concomitant]
     Indication: Mineral supplementation
     Dosage: 10 ML, QD, (STRENGTH: 8.0UL/103. 0MG/8.0UL)
     Route: 048
  7. AMARYL [Concomitant]
     Active Substance: GLIMEPIRIDE
     Indication: Blood glucose decreased
     Dosage: 1 DF, BID
     Route: 050
  8. CEFADROXIL [Concomitant]
     Active Substance: CEFADROXIL
     Indication: Urinary tract infection
     Dosage: 2 DF, BID
     Route: 048
  9. COMBIGAN [Concomitant]
     Active Substance: BRIMONIDINE TARTRATE\TIMOLOL MALEATE
     Indication: Intraocular pressure decreased
     Route: 047
  10. MINERAL OIL EMULSION\PETROLATUM [Concomitant]
     Active Substance: MINERAL OIL EMULSION\PETROLATUM
     Indication: Dry eye
     Dosage: 0.1 G, QD
     Route: 047
  11. Famo [Concomitant]
     Indication: Prophylaxis
     Dosage: 1 DF, QD
     Route: 050
  12. METHYLCOBALAMIN [Concomitant]
     Active Substance: METHYLCOBALAMIN
     Indication: Neuralgia
     Dosage: 1 DF, BID
     Route: 050
  13. Mopride [Concomitant]
     Indication: Gastrointestinal hypermotility
     Route: 050
  14. PLAVIX [Concomitant]
     Active Substance: CLOPIDOGREL BISULFATE
     Indication: Cerebrovascular accident
     Dosage: 1 DF, QD
     Route: 050
  15. PROLIA [Concomitant]
     Active Substance: DENOSUMAB
     Indication: Osteoporosis
     Route: 058
  16. RYZODEG 70/30 [Concomitant]
     Active Substance: INSULIN ASPART\INSULIN DEGLUDEC
     Indication: Blood glucose decreased
     Route: 058
  17. SENNOSIDES [Concomitant]
     Active Substance: SENNOSIDES
     Indication: Faeces soft
     Dosage: 2 DF, QD
     Route: 050
  18. TOUJEO [Concomitant]
     Active Substance: INSULIN GLARGINE
     Route: 058
  19. TOUJEO [Concomitant]
     Active Substance: INSULIN GLARGINE
     Indication: Blood glucose decreased
     Dosage: 30 IU, QD; STRENGTH: 300 UNITS/ML
     Route: 058

REACTIONS (1)
  - Dermatitis bullous [Unknown]

NARRATIVE: CASE EVENT DATE: 20240525
